FAERS Safety Report 19166249 (Version 1)
Quarter: 2021Q2

REPORT INFORMATION
  Report Type: Spontaneous
  Country: SA (occurrence: SA)
  Receive Date: 20210421
  Receipt Date: 20210421
  Transmission Date: 20210717
  Serious: Yes (Hospitalization, Other)
  Sender: FDA-Public Use
  Company Number: SA-FERRINGPH-2021FE02444

PATIENT
  Age: 57 Year
  Sex: Female

DRUGS (2)
  1. PROGESTERONE. [Suspect]
     Active Substance: PROGESTERONE
     Indication: VAGINAL HAEMORRHAGE
     Route: 065
  2. XELJANZ [Suspect]
     Active Substance: TOFACITINIB CITRATE
     Indication: RHEUMATOID ARTHRITIS
     Dosage: 11 MG
     Route: 065

REACTIONS (4)
  - Cardiac ventricular thrombosis [Recovered/Resolved]
  - Product use in unapproved indication [Unknown]
  - Splenic infarction [Recovered/Resolved]
  - Off label use [Unknown]
